FAERS Safety Report 9919136 (Version 1)
Quarter: 2014Q1

REPORT INFORMATION
  Report Type: Spontaneous
  Country: AU (occurrence: AU)
  Receive Date: 20140224
  Receipt Date: 20140224
  Transmission Date: 20141002
  Serious: Yes (Other)
  Sender: FDA-Public Use
  Company Number: AU-ROCHE-1348389

PATIENT
  Sex: Male
  Weight: .98 kg

DRUGS (10)
  1. AMLODIPINE [Suspect]
     Indication: HYPERTENSION
     Dosage: DOSE UNSPECIFIED
     Route: 064
  2. ASPIRIN [Suspect]
     Indication: PRE-ECLAMPSIA
     Dosage: DOSE UNSPECIFIED
     Route: 064
  3. CANDESARTAN CILEXETIL [Suspect]
     Indication: HYPERTENSION
     Dosage: DOSE UNSPEC
     Route: 064
  4. HYDRALAZINE HYDROCHLORIDE [Suspect]
     Indication: HYPERTENSION
     Dosage: DOSE UNSPEC
     Route: 064
  5. LABETALOL HYDROCHLORIDE [Suspect]
     Indication: HYPERTENSION
     Dosage: DOSE UNSPEC
     Route: 064
  6. METHYLDOPA [Suspect]
     Indication: HYPERTENSION
     Dosage: DOSE UNSPEC
     Route: 064
  7. MYCOPHENOLATE MOFETIL [Suspect]
     Indication: PRODUCT USED FOR UNKNOWN INDICATION
     Dosage: DOSE UNSPEC
     Route: 064
  8. PERINDOPRIL [Suspect]
     Indication: HYPERTENSION
     Dosage: DOSE UNSPEC
     Route: 064
  9. NIFEDIPINE [Suspect]
     Indication: HYPERTENSION
     Route: 064
  10. ENOXAPARIN [Suspect]
     Indication: PRE-ECLAMPSIA
     Route: 064

REACTIONS (3)
  - Foetal growth restriction [Unknown]
  - Low birth weight baby [Unknown]
  - Foetal exposure during pregnancy [Unknown]
